FAERS Safety Report 8240279-1 (Version None)
Quarter: 2012Q1

REPORT INFORMATION
  Report Type: 
  Country: None (occurrence: None)
  Receive Date: 20120328
  Receipt Date: 20120328
  Transmission Date: 20120608
  Serious: Yes (Other)
  Sender: FDA-Public Use
  Company Number: None

PATIENT
  Age: 8 Year
  Sex: Male
  Weight: 26.308 kg

DRUGS (2)
  1. STRATTERA [Suspect]
     Indication: ATTENTION DEFICIT/HYPERACTIVITY DISORDER
     Dosage: STARTED AT 10,THEN18,THEN 25MG
     Route: 048
     Dates: start: 20120201, end: 20120315
  2. STRATTERA [Interacting]
     Route: 048

REACTIONS (18)
  - PARANOIA [None]
  - HALLUCINATION, AUDITORY [None]
  - HOMICIDAL IDEATION [None]
  - DYSPNOEA [None]
  - DIZZINESS [None]
  - NAUSEA [None]
  - PANIC ATTACK [None]
  - INTENTIONAL SELF-INJURY [None]
  - NERVOUSNESS [None]
  - ABNORMAL BEHAVIOUR [None]
  - SUICIDAL IDEATION [None]
  - SCHOOL REFUSAL [None]
  - MENTAL DISORDER [None]
  - FEAR [None]
  - DEPRESSED MOOD [None]
  - CRYING [None]
  - ANXIETY [None]
  - CHEST PAIN [None]
